FAERS Safety Report 15869754 (Version 3)
Quarter: 2019Q1

REPORT INFORMATION
  Report Type: Spontaneous
  Country: US (occurrence: US)
  Receive Date: 20190125
  Receipt Date: 20190312
  Transmission Date: 20190417
  Serious: No
  Sender: FDA-Public Use
  Company Number: US-PFIZER INC-2019027217

PATIENT
  Age: 90 Year
  Sex: Female
  Weight: 53 kg

DRUGS (3)
  1. LABETALOL HYDROCHLORIDE. [Suspect]
     Active Substance: LABETALOL HYDROCHLORIDE
     Indication: HYPERTENSION
     Dosage: 4 ML, UNK (20 MG OR 4 ML)
  2. LABETALOL HYDROCHLORIDE. [Suspect]
     Active Substance: LABETALOL HYDROCHLORIDE
     Dosage: 5 MG/ML
  3. LIDOCAINE. [Concomitant]
     Active Substance: LIDOCAINE
     Indication: SUTURE INSERTION
     Dosage: UNK
     Route: 061

REACTIONS (4)
  - Incorrect dosage administered [Unknown]
  - Poor quality product administered [Unknown]
  - Product packaging quantity issue [Unknown]
  - Hypotension [Unknown]

NARRATIVE: CASE EVENT DATE: 20190116
